FAERS Safety Report 13496888 (Version 1)
Quarter: 2017Q2

REPORT INFORMATION
  Report Type: Spontaneous
  Country: US (occurrence: US)
  Receive Date: 20170428
  Receipt Date: 20170428
  Transmission Date: 20170830
  Serious: No
  Sender: FDA-Public Use
  Company Number: US-009507513-1704USA013194

PATIENT
  Age: 20 Year
  Sex: Female
  Weight: 88.89 kg

DRUGS (1)
  1. NEXPLANON [Suspect]
     Active Substance: ETONOGESTREL
     Indication: CONTRACEPTION
     Dosage: UNK, FOR 3 YEARS
     Dates: start: 20140919

REACTIONS (4)
  - Mood swings [Unknown]
  - Depression [Unknown]
  - Muscle spasms [Unknown]
  - Menorrhagia [Unknown]
